FAERS Safety Report 9043207 (Version 1)
Quarter: 2013Q1

REPORT INFORMATION
  Report Type: Report from Study
  Country: US (occurrence: US)
  Receive Date: 20130129
  Receipt Date: 20130129
  Transmission Date: 20140127
  Serious: Yes (Other)
  Sender: FDA-Public Use
  Company Number: US-ABBOTT-12P-163-0901998-00

PATIENT
  Age: 31 Year
  Sex: Female

DRUGS (1)
  1. HUMIRA 40 MG/0.8 ML PEN [Suspect]
     Indication: CROHN^S DISEASE
     Dosage: 1 IN 2 WEEKS, ON HOLD
     Dates: start: 20111208, end: 20120107

REACTIONS (2)
  - Abdominal abscess [Recovering/Resolving]
  - Impaired healing [Recovered/Resolved]
